FAERS Safety Report 10175686 (Version 1)
Quarter: 2014Q2

REPORT INFORMATION
  Report Type: Spontaneous
  Country: US (occurrence: US)
  Receive Date: 20140516
  Receipt Date: 20140516
  Transmission Date: 20141212
  Serious: No
  Sender: FDA-Public Use
  Company Number: US-009507513-1405USA006604

PATIENT
  Age: 7 Year
  Sex: Male

DRUGS (1)
  1. CLARITIN CHEWABLE TABLETS [Suspect]
     Indication: MULTIPLE ALLERGIES
     Dosage: UNK, UNKNOWN
     Route: 048

REACTIONS (4)
  - Asthma [Unknown]
  - Conjunctivitis allergic [Unknown]
  - Sinusitis [Unknown]
  - Drug effect incomplete [Unknown]
